FAERS Safety Report 17543722 (Version 1)
Quarter: 2020Q1

REPORT INFORMATION
  Report Type: Spontaneous
  Country: IN (occurrence: IN)
  Receive Date: 20200316
  Receipt Date: 20200316
  Transmission Date: 20200409
  Serious: Yes (Hospitalization, Other)
  Sender: FDA-Public Use
  Company Number: IN-AMGEN-INDSP2020041473

PATIENT

DRUGS (1)
  1. FILGRASTIM [Suspect]
     Active Substance: FILGRASTIM
     Indication: PROPHYLAXIS
     Dosage: 300 UG/DAY FOR WEIGHT {60 KG, 480 PG/DAY, FOR WEIGHT }60 KG, FOR AT LEAST 10 CONSECUTIVE DAYS)
     Route: 058

REACTIONS (14)
  - Hospitalisation [Unknown]
  - Fatigue [Unknown]
  - Pyrexia [Unknown]
  - Asthenia [Unknown]
  - Mucosal inflammation [Unknown]
  - Vomiting [Unknown]
  - Infection [Unknown]
  - Musculoskeletal pain [Unknown]
  - Dizziness [Unknown]
  - Anaemia [Unknown]
  - Stomatitis [Unknown]
  - Fungal infection [Unknown]
  - Diarrhoea [Unknown]
  - Febrile neutropenia [Unknown]
